FAERS Safety Report 6577194-5 (Version None)
Quarter: 2010Q1

REPORT INFORMATION
  Report Type: 
  Country: None (occurrence: None)
  Receive Date: 20100210
  Receipt Date: 20100202
  Transmission Date: 20100710
  Serious: Yes (Other)
  Sender: FDA-Public Use
  Company Number: PHHY2010DE05788

PATIENT
  Sex: Female

DRUGS (1)
  1. FEMARA [Suspect]
     Indication: BREAST CANCER
     Dosage: 1 DAILY
     Route: 048
     Dates: start: 20080201

REACTIONS (3)
  - DEPOSIT EYE [None]
  - MACULAR DEGENERATION [None]
  - VISUAL ACUITY REDUCED [None]
